FAERS Safety Report 4504643-6 (Version None)
Quarter: 2004Q4

REPORT INFORMATION
  Report Type: 
  Country: None (occurrence: None)
  Receive Date: 20041116
  Receipt Date: 20041104
  Transmission Date: 20050328
  Serious: Yes (Hospitalization)
  Sender: FDA-Public Use
  Company Number: 2004088590

PATIENT
  Sex: Female

DRUGS (2)
  1. TAHOR (ATORVASTATIN) [Suspect]
     Indication: HYPERCHOLESTEROLAEMIA
     Dosage: 40 MG (40 MG, 1 IN 1 D)
  2. MAXEPA (CITRIC ACID, FATTY ACIDS NOS, GLUCOSE, INSULIN, INSULIN HUMAN [Concomitant]

REACTIONS (2)
  - HERNIA [None]
  - PRURIGO [None]
